FAERS Safety Report 4339479-2 (Version None)
Quarter: 2004Q2

REPORT INFORMATION
  Report Type: 
  Country: None (occurrence: None)
  Receive Date: 20040415
  Receipt Date: 20030410
  Transmission Date: 20050107
  Serious: Yes (Hospitalization)
  Sender: FDA-Public Use
  Company Number: US-ROCHE-335811

PATIENT
  Age: 38 Year
  Sex: Female
  Weight: 69.5 kg

DRUGS (8)
  1. PEG-INTERFERON ALFA 2A (RO 25-8310) [Suspect]
     Route: 058
     Dates: start: 20030211, end: 20030405
  2. RIBAVIRIN [Suspect]
     Route: 048
     Dates: start: 20030211, end: 20030405
  3. COMBIVIR [Concomitant]
     Indication: DRUG USE FOR UNKNOWN INDICATION
  4. VIRAMUNE [Concomitant]
     Indication: DRUG USE FOR UNKNOWN INDICATION
  5. EFFEXOR [Concomitant]
     Indication: DRUG USE FOR UNKNOWN INDICATION
  6. AVANDIA [Concomitant]
  7. METHADONE HCL [Concomitant]
  8. OXYCODONE [Concomitant]

REACTIONS (7)
  - FATIGUE [None]
  - GLYCOSYLATED HAEMOGLOBIN INCREASED [None]
  - NEUROPATHIC PAIN [None]
  - POLLAKIURIA [None]
  - POLYDIPSIA [None]
  - THIRST [None]
  - WEIGHT DECREASED [None]
